FAERS Safety Report 10061658 (Version 3)
Quarter: 2014Q3

REPORT INFORMATION
  Report Type: Report from Study
  Country: DE (occurrence: DE)
  Receive Date: 20140407
  Receipt Date: 20140812
  Transmission Date: 20150326
  Serious: Yes (Hospitalization)
  Sender: FDA-Public Use
  Company Number: DE-BAYER-2012-122325

PATIENT
  Sex: Female
  Weight: 51 kg

DRUGS (2)
  1. TAVOR [LORAZEPAM] [Concomitant]
     Active Substance: LORAZEPAM
     Dosage: 1 MG, UNK
     Dates: start: 201207
  2. REGORAFENIB [Suspect]
     Active Substance: REGORAFENIB
     Indication: COLORECTAL CANCER METASTATIC
     Dosage: DAILY DOSE 160 MG
     Route: 048
     Dates: start: 20121105, end: 20121111

REACTIONS (1)
  - Cholestasis [Recovering/Resolving]

NARRATIVE: CASE EVENT DATE: 20121116
